FAERS Safety Report 9425431 (Version 2)
Quarter: 2013Q3

REPORT INFORMATION
  Report Type: Spontaneous
  Country: AU (occurrence: AU)
  Receive Date: 20130729
  Receipt Date: 20130812
  Transmission Date: 20140515
  Serious: Yes (Hospitalization)
  Sender: FDA-Public Use
  Company Number: AU-009507513-1307AUS013413

PATIENT
  Age: 40 Year
  Sex: Female

DRUGS (1)
  1. SAPHRIS [Suspect]
     Dosage: 5 MG, BID
     Route: 060

REACTIONS (2)
  - Mental status changes [Recovered/Resolved]
  - Akathisia [Unknown]
